FAERS Safety Report 7727750-3 (Version None)
Quarter: 2011Q3

REPORT INFORMATION
  Report Type: 
  Country: None (occurrence: None)
  Receive Date: 20110902
  Receipt Date: 20110824
  Transmission Date: 20111222
  Serious: Yes (Hospitalization, Other)
  Sender: FDA-Public Use
  Company Number: US-ASTRAZENECA-2011SE51272

PATIENT
  Age: 65 Year
  Sex: Male

DRUGS (2)
  1. PRILOSEC [Concomitant]
  2. NEXIUM [Suspect]
     Route: 048
     Dates: start: 20020101

REACTIONS (6)
  - MENTAL DISORDER [None]
  - SEIZURE LIKE PHENOMENA [None]
  - DRUG DOSE OMISSION [None]
  - SUICIDE ATTEMPT [None]
  - ABDOMINAL DISCOMFORT [None]
  - OESOPHAGEAL DISORDER [None]
